FAERS Safety Report 17070828 (Version 1)
Quarter: 2019Q4

REPORT INFORMATION
  Report Type: Spontaneous
  Country: US (occurrence: US)
  Receive Date: 20191125
  Receipt Date: 20191125
  Transmission Date: 20200122
  Serious: No
  Sender: FDA-Public Use
  Company Number: US-HIKMA PHARMACEUTICALS USA INC.-US-H14001-19-05158

PATIENT
  Sex: Female

DRUGS (2)
  1. IPRATROPIUM [Suspect]
     Active Substance: IPRATROPIUM
     Indication: RHINORRHOEA
  2. IPRATROPIUM [Suspect]
     Active Substance: IPRATROPIUM
     Indication: HYPERSENSITIVITY
     Route: 045

REACTIONS (2)
  - Underdose [Unknown]
  - Accidental exposure to product [Unknown]
